FAERS Safety Report 7100129-3 (Version None)
Quarter: 2010Q4

REPORT INFORMATION
  Report Type: 
  Country: None (occurrence: None)
  Receive Date: 20101112
  Receipt Date: 20100323
  Transmission Date: 20110411
  Serious: No
  Sender: FDA-Public Use
  Company Number: A0852217A

PATIENT
  Sex: Female

DRUGS (2)
  1. COREG [Suspect]
     Route: 065
  2. BETA-BLOCKER(UNSPECIFIED) [Suspect]
     Route: 065

REACTIONS (1)
  - ALOPECIA [None]
